FAERS Safety Report 13169976 (Version 2)
Quarter: 2018Q1

REPORT INFORMATION
  Report Type: Spontaneous
  Country: US (occurrence: US)
  Receive Date: 20170131
  Receipt Date: 20180125
  Transmission Date: 20180508
  Serious: No
  Sender: FDA-Public Use
  Company Number: US-ABBVIE-16K-163-1632422-00

PATIENT
  Sex: Male

DRUGS (1)
  1. HUMIRA [Suspect]
     Active Substance: ADALIMUMAB
     Indication: PSORIASIS
     Route: 058

REACTIONS (14)
  - General physical condition abnormal [Unknown]
  - Anxiety [Unknown]
  - Pruritus [Unknown]
  - Rash macular [Unknown]
  - Psoriasis [Unknown]
  - Dry skin [Unknown]
  - Pain of skin [Unknown]
  - Mental disorder [Unknown]
  - Skin burning sensation [Unknown]
  - Skin fissures [Unknown]
  - Pruritus generalised [Unknown]
  - Alopecia [Unknown]
  - Emotional distress [Unknown]
  - Swelling [Unknown]
